FAERS Safety Report 9392867 (Version 1)
Quarter: 2013Q3

REPORT INFORMATION
  Report Type: Spontaneous
  Country: US (occurrence: None)
  Receive Date: 20130708
  Receipt Date: 20130708
  Transmission Date: 20140515
  Serious: No
  Sender: FDA-Public Use
  Company Number: None

PATIENT
  Sex: Female
  Weight: 67.59 kg

DRUGS (1)
  1. ORTHOCEPT [Suspect]
     Indication: MENORRHAGIA
     Route: 048
     Dates: start: 201205

REACTIONS (2)
  - Haemorrhage [None]
  - Product substitution issue [None]
